FAERS Safety Report 20633780 (Version 1)
Quarter: 2022Q1

REPORT INFORMATION
  Report Type: Spontaneous
  Country: US (occurrence: US)
  Receive Date: 20220324
  Receipt Date: 20220324
  Transmission Date: 20220424
  Serious: Yes (Death, Hospitalization, Other)
  Sender: FDA-Public Use
  Company Number: US-JNJFOC-20220331325

PATIENT
  Age: 41 Year
  Sex: Female

DRUGS (4)
  1. IMBRUVICA [Suspect]
     Active Substance: IBRUTINIB
     Indication: Lymphoma
     Route: 048
  2. IMBRUVICA [Suspect]
     Active Substance: IBRUTINIB
     Route: 048
  3. IMBRUVICA [Suspect]
     Active Substance: IBRUTINIB
     Route: 048
  4. RITUXIMAB [Suspect]
     Active Substance: RITUXIMAB
     Indication: Lymphoma
     Route: 065

REACTIONS (8)
  - Acute kidney injury [Fatal]
  - Escherichia sepsis [Fatal]
  - Pleural effusion [Unknown]
  - Pericardial effusion [Unknown]
  - Cardiac failure [Unknown]
  - Upper gastrointestinal haemorrhage [Unknown]
  - Off label use [Unknown]
  - Incorrect dose administered [Unknown]
